FAERS Safety Report 5167293-7 (Version None)
Quarter: 2006Q4

REPORT INFORMATION
  Report Type: 
  Country: None (occurrence: None)
  Receive Date: 20061130
  Receipt Date: 20061120
  Transmission Date: 20070319
  Serious: Yes (Other)
  Sender: FDA-Public Use
  Company Number: CIP06002750

PATIENT
  Sex: Female

DRUGS (2)
  1. ACTONEL [Suspect]
     Indication: PROPHYLAXIS
     Dosage: ORAL
     Route: 048
     Dates: start: 20030701, end: 20060401
  2. ZOLOFT [Suspect]

REACTIONS (5)
  - DYSKINESIA [None]
  - FEEDING DISORDER [None]
  - TREMOR [None]
  - TRISMUS [None]
  - WEIGHT DECREASED [None]
